FAERS Safety Report 7499557-6 (Version None)
Quarter: 2011Q2

REPORT INFORMATION
  Report Type: 
  Country: None (occurrence: None)
  Receive Date: 20110524
  Receipt Date: 20110511
  Transmission Date: 20111010
  Serious: Yes (Other)
  Sender: FDA-Public Use
  Company Number: US-AMGEN-USASP2011024489

PATIENT
  Age: 58 Year
  Sex: Female

DRUGS (1)
  1. ENBREL [Suspect]
     Indication: RHEUMATOID ARTHRITIS
     Dosage: 50 MG, QWK
     Dates: start: 20101001

REACTIONS (6)
  - MONOCLONAL GAMMOPATHY [None]
  - VOMITING [None]
  - HAEMORRHAGE [None]
  - NASAL SEPTUM DEVIATION [None]
  - DIARRHOEA [None]
  - DRY MOUTH [None]
